FAERS Safety Report 21234011 (Version 3)
Quarter: 2022Q3

REPORT INFORMATION
  Report Type: Report from Study
  Country: US (occurrence: US)
  Receive Date: 20220819
  Receipt Date: 20220901
  Transmission Date: 20221027
  Serious: Yes (Hospitalization)
  Sender: FDA-Public Use
  Company Number: US-AMGEN-USACT2022140748

PATIENT
  Age: 67 Year
  Sex: Female
  Weight: 51.3 kg

DRUGS (14)
  1. SOTORASIB [Suspect]
     Active Substance: SOTORASIB
     Indication: Colorectal cancer stage IV
     Dosage: 960 MILLIGRAM
     Route: 048
     Dates: start: 20220623
  2. SOTORASIB [Suspect]
     Active Substance: SOTORASIB
     Indication: K-ras gene mutation
  3. PANITUMUMAB [Suspect]
     Active Substance: PANITUMUMAB
     Indication: Colorectal cancer stage IV
     Dosage: 304 MILLIGRAM
     Route: 042
     Dates: start: 20220623
  4. PANITUMUMAB [Suspect]
     Active Substance: PANITUMUMAB
     Indication: K-ras gene mutation
  5. CALCIUM CARBONATE [Concomitant]
     Active Substance: CALCIUM CARBONATE
     Dosage: 500 MILLIGRAM
     Route: 048
     Dates: start: 20220626
  6. ESTRACE [Concomitant]
     Active Substance: ESTRADIOL
     Dosage: 1 MILLIGRAM
     Route: 048
     Dates: start: 20180101
  7. HYDROCORTISONE [Concomitant]
     Active Substance: HYDROCORTISONE
     Dosage: 2.5 UNK
     Route: 061
     Dates: start: 20220707
  8. VIBRAMYCIN [Concomitant]
     Active Substance: DOXYCYCLINE
     Dosage: 100 MILLIGRAM
     Route: 048
     Dates: start: 20220707, end: 20220818
  9. CARAFATE [Concomitant]
     Active Substance: SUCRALFATE
     Dosage: 1 GRAM
     Route: 048
     Dates: start: 20220726
  10. ALUMINUM HYDROXIDE\DIMETHICONE\MAGNESIUM HYDROXIDE [Concomitant]
     Active Substance: ALUMINUM HYDROXIDE\DIMETHICONE\MAGNESIUM HYDROXIDE
     Dosage: 30 MILLILITER
     Route: 048
     Dates: start: 20220717
  11. BIOTIN [Concomitant]
     Active Substance: BIOTIN
     Dosage: 1 MILLIGRAM
     Route: 048
     Dates: start: 20220101
  12. BISACODYL [Concomitant]
     Active Substance: BISACODYL
     Dosage: 5 MILLIGRAM
     Route: 048
     Dates: start: 20220101
  13. DIPHENHYDRAMINE [Concomitant]
     Active Substance: DIPHENHYDRAMINE
     Dosage: 25 MILLIGRAM
     Route: 048
     Dates: start: 20220101, end: 20220818
  14. TESSALON [Concomitant]
     Active Substance: BENZONATATE
     Dosage: 200 MILLIGRAM
     Route: 048
     Dates: start: 20220609, end: 20220814

REACTIONS (1)
  - Vasculitis [Recovered/Resolved with Sequelae]

NARRATIVE: CASE EVENT DATE: 20220814
